FAERS Safety Report 20858373 (Version 1)
Quarter: 2022Q2

REPORT INFORMATION
  Report Type: Spontaneous
  Country: CA (occurrence: None)
  Receive Date: 20220521
  Receipt Date: 20220521
  Transmission Date: 20220720
  Serious: Yes (Hospitalization)
  Sender: FDA-Public Use
  Company Number: CA-ROCHE-3100997

PATIENT
  Age: 91 Year
  Sex: Male

DRUGS (9)
  1. ESBRIET [Suspect]
     Active Substance: PIRFENIDONE
     Indication: Idiopathic pulmonary fibrosis
     Dosage: DRUG DOSE FIRST ADMINISTERED IS 534.0 MILLIGRAM THERAPY DURATION + THERAPY DURATION UNITS IS 1 DAYS
     Route: 048
  2. COMIRNATY [Suspect]
     Active Substance: TOZINAMERAN
     Indication: COVID-19 immunisation
     Dosage: 6 DOSES OF 0.3 ML  AFTER DILUTION
     Route: 030
  3. MIRTAZAPINE [Concomitant]
     Active Substance: MIRTAZAPINE
  4. TYLENOL [Concomitant]
     Active Substance: ACETAMINOPHEN
  5. FOLIC ACID [Concomitant]
     Active Substance: FOLIC ACID
  6. IRON [Concomitant]
     Active Substance: IRON
  7. SYNTHROID [Concomitant]
     Active Substance: LEVOTHYROXINE SODIUM
  8. WARFARIN [Concomitant]
     Active Substance: WARFARIN
  9. LORAZEPAM [Concomitant]
     Active Substance: LORAZEPAM

REACTIONS (2)
  - Cystitis [Unknown]
  - Dyspnoea [Unknown]
